FAERS Safety Report 5451392-6 (Version None)
Quarter: 2007Q3

REPORT INFORMATION
  Report Type: 
  Country: None (occurrence: None)
  Receive Date: 20070913
  Receipt Date: 20070907
  Transmission Date: 20080115
  Serious: Yes (Other)
  Sender: FDA-Public Use
  Company Number: A0621003A

PATIENT
  Age: 68 Year
  Sex: Female

DRUGS (4)
  1. CARVEDILOL [Suspect]
     Indication: ATRIAL FIBRILLATION
     Dosage: 12.5MG PER DAY
     Route: 048
     Dates: start: 20060101, end: 20070401
  2. DIOVAN [Suspect]
     Dosage: 80MG PER DAY
     Route: 048
     Dates: start: 20060523, end: 20061017
  3. COUMADIN [Concomitant]
     Indication: ATRIAL FIBRILLATION
     Route: 048
     Dates: start: 20051122
  4. TYLENOL (CAPLET) [Concomitant]
     Indication: ARTHRALGIA
     Dosage: 1000MG FOUR TIMES PER DAY
     Route: 048

REACTIONS (10)
  - ARTHRALGIA [None]
  - ATRIAL FIBRILLATION [None]
  - CARDIAC FAILURE CONGESTIVE [None]
  - CONFUSIONAL STATE [None]
  - FEELING ABNORMAL [None]
  - JOINT INSTABILITY [None]
  - LEFT VENTRICULAR DYSFUNCTION [None]
  - MALAISE [None]
  - MYALGIA [None]
  - STOMACH DISCOMFORT [None]
